FAERS Safety Report 8825037 (Version 1)
Quarter: 2012Q4

REPORT INFORMATION
  Report Type: 
  Country: US (occurrence: US)
  Receive Date: 20121004
  Receipt Date: 20121004
  Transmission Date: 20130627
  Serious: Yes (Hospitalization)
  Sender: FDA-Public Use
  Company Number: US-ROCHE-1129931

PATIENT
  Sex: Male

DRUGS (3)
  1. RITUXAN [Suspect]
     Indication: LYMPHOMA
     Route: 065
     Dates: start: 20000103
  2. RITUXAN [Suspect]
     Indication: OFF LABEL USE
  3. RITUXAN [Suspect]
     Indication: MANTLE CELL LYMPHOMA

REACTIONS (1)
  - Renal failure [Unknown]
